FAERS Safety Report 9226749 (Version 1)
Quarter: 2013Q2

REPORT INFORMATION
  Report Type: Spontaneous
  Country: BR (occurrence: None)
  Receive Date: 20130410
  Receipt Date: 20130410
  Transmission Date: 20140414
  Serious: Yes (Hospitalization)
  Sender: FDA-Public Use
  Company Number: IMP_06648_2013

PATIENT
  Age: 45 Year
  Sex: Female

DRUGS (5)
  1. PROMETHAZINE (PROMETHAZINE) [Suspect]
     Indication: PRODUCT USED FOR UNKNOWN INDICATION
  2. CLONAZEPAM (CLONAZEPAM) (CLONAZEPAM) [Suspect]
     Indication: PRODUCT USED FOR UNKNOWN INDICATION
  3. OXCARBAZEPINE (OXCARBAZEPINE) TABLET, 300MG [Suspect]
     Indication: PRODUCT USED FOR UNKNOWN INDICATION
  4. QUETIAPINE (QUETIAPINE) (QUETIAPINE) [Suspect]
     Indication: PRODUCT USED FOR UNKNOWN INDICATION
  5. PHENOBARBITAL [Suspect]
     Indication: PRODUCT USED FOR UNKNOWN INDICATION

REACTIONS (6)
  - Intentional overdose [None]
  - Dermatitis bullous [None]
  - Rhabdomyolysis [None]
  - Toxicity to various agents [None]
  - Blister [None]
  - Epidermal necrosis [None]
